FAERS Safety Report 21714402 (Version 1)
Quarter: 2022Q4

REPORT INFORMATION
  Report Type: Spontaneous
  Country: US (occurrence: None)
  Receive Date: 20221209
  Receipt Date: 20221209
  Transmission Date: 20230112
  Serious: No
  Sender: FDA-Public Use
  Company Number: None

PATIENT
  Age: 59 Year
  Sex: Female

DRUGS (1)
  1. COSENTYX [Suspect]
     Active Substance: SECUKINUMAB
     Indication: Psoriatic arthropathy
     Dosage: OTHER QUANTITY : 150MG (1 PEN);?FREQUENCY : AS DIRECTED;?INJECT 150MG (1 PEN) SUBCUTANEOUSLY ONCE A
     Route: 058
     Dates: start: 202204

REACTIONS (4)
  - Nasopharyngitis [None]
  - Oropharyngeal pain [None]
  - Infection [None]
  - Therapy interrupted [None]
